FAERS Safety Report 4767327-5 (Version None)
Quarter: 2005Q3

REPORT INFORMATION
  Report Type: 
  Country: None (occurrence: None)
  Receive Date: 20050913
  Receipt Date: 20050906
  Transmission Date: 20060218
  Serious: Yes (Hospitalization)
  Sender: FDA-Public Use
  Company Number: ES-GLAXOSMITHKLINE-B0393531A

PATIENT
  Age: 62 Year
  Sex: Male
  Weight: 96 kg

DRUGS (1)
  1. AUGMENTIN [Suspect]
     Indication: TOOTH ABSCESS
     Dosage: 1.5G PER DAY
     Dates: start: 20050218, end: 20050222

REACTIONS (3)
  - HEPATIC LESION [None]
  - HYPERBILIRUBINAEMIA [None]
  - PRURITUS [None]
